FAERS Safety Report 7553682-X (Version None)
Quarter: 2011Q2

REPORT INFORMATION
  Report Type: 
  Country: None (occurrence: None)
  Receive Date: 20110614
  Receipt Date: 20110614
  Transmission Date: 20111010
  Serious: Yes (Life-Threatening, Hospitalization)
  Sender: FDA-Public Use
  Company Number: None

PATIENT
  Age: 45 Year
  Sex: Female
  Weight: 86.1834 kg

DRUGS (2)
  1. VENLAFAXINE [Suspect]
     Indication: HOT FLUSH
     Dosage: 1 PER DAY PO
     Route: 048
     Dates: start: 20110611, end: 20110611
  2. VENLAFAXINE [Suspect]
     Indication: AFFECTIVE DISORDER
     Dosage: 1 PER DAY PO
     Route: 048
     Dates: start: 20110611, end: 20110611

REACTIONS (2)
  - APHASIA [None]
  - DYSTONIA [None]
